FAERS Safety Report 9866897 (Version 1)
Quarter: 2014Q1

REPORT INFORMATION
  Report Type: Spontaneous
  Country: US (occurrence: US)
  Receive Date: 20140204
  Receipt Date: 20140204
  Transmission Date: 20141002
  Serious: Yes (Other)
  Sender: FDA-Public Use
  Company Number: US-TEVA-459228USA

PATIENT
  Sex: Female

DRUGS (5)
  1. FENTANYL [Suspect]
     Indication: PAIN
  2. FENTANYL [Suspect]
     Indication: BREAKTHROUGH PAIN
  3. METHADONE [Concomitant]
  4. AMITRIPTYLINE [Concomitant]
  5. LEVOTHYROXINE [Concomitant]

REACTIONS (14)
  - Drug ineffective [Unknown]
  - Loss of consciousness [Unknown]
  - Malaise [Unknown]
  - Gastrointestinal pain [Unknown]
  - Vomiting [Unknown]
  - Weight decreased [Unknown]
  - Vomiting [Unknown]
  - Activities of daily living impaired [Unknown]
  - Nausea [Unknown]
  - Musculoskeletal chest pain [Unknown]
  - Dyspnoea [Unknown]
  - Pain [Unknown]
  - Scoliosis [Unknown]
  - Investigation [Unknown]
